FAERS Safety Report 4694271-4 (Version None)
Quarter: 2005Q2

REPORT INFORMATION
  Report Type: 
  Country: None (occurrence: None)
  Receive Date: 20050620
  Receipt Date: 20050106
  Transmission Date: 20051028
  Serious: Yes (Hospitalization, Disabling)
  Sender: FDA-Public Use
  Company Number: JP-SOLVAY-00305000085

PATIENT
  Age: 24726 Day
  Sex: Male

DRUGS (29)
  1. TOFRANIL [Concomitant]
     Indication: DEPRESSION
     Dosage: DAILY DOSE: 150 MILLIGRAM(S)
     Route: 048
     Dates: start: 20030614, end: 20030619
  2. DEPROMEL 25 [Suspect]
     Indication: DEPRESSION
     Dosage: DAILY DOSE: 75 MILLIGRAM(S)
     Route: 048
     Dates: start: 20030530, end: 20030619
  3. DEPAS [Concomitant]
     Indication: ANXIETY
     Dosage: DAILY DOSE: 1.5 MILLIGRAM(S)
     Route: 048
     Dates: start: 20030530, end: 20030619
  4. SERENACE [Suspect]
     Indication: DELUSION
     Dosage: DAILY DOSE: 2.25 MILLIGRAM(S)
     Route: 048
     Dates: start: 20030530, end: 20030619
  5. SERENACE [Suspect]
     Dosage: DAILY DOSE: 1 MILLILITRE(S)
     Route: 030
     Dates: start: 20030530, end: 20030530
  6. SERENACE [Suspect]
     Dosage: DAILY DOSE: 1 MILLILITRE(S)
     Route: 030
     Dates: start: 20030620, end: 20030620
  7. TASMOLIN [Concomitant]
     Indication: PROPHYLAXIS
     Dosage: DAILY DOSE: 3 MILLIGRAM(S)
     Route: 048
     Dates: start: 20030530, end: 20030612
  8. TASMOLIN [Concomitant]
     Dosage: DAILY DOSE: 6 MILLIGRAM(S)
     Route: 048
     Dates: start: 20030613, end: 20030619
  9. ANAFRANIL [Concomitant]
     Indication: DEPRESSION
     Dosage: DAILY DOSE: 75 MILLIGRAM(S)
     Route: 048
     Dates: start: 20030530, end: 20030614
  10. ANAFRANIL [Concomitant]
     Dosage: DAILY DOSE: 50 MILLIGRAM(S)
     Route: 065
     Dates: start: 20030530, end: 20030613
  11. LUDIOMIL [Concomitant]
     Indication: DEPRESSION
     Dosage: DAILY DOSE: 25 MILLIGRAM(S)
     Route: 048
     Dates: start: 20030530, end: 20030614
  12. TETRAMIDE [Concomitant]
     Indication: DEPRESSION
     Dosage: DAILY DOSE: 30 MILLIGRAM(S)
     Route: 048
     Dates: start: 20030614, end: 20030619
  13. BENZALIN [Concomitant]
     Indication: INSOMNIA
     Dosage: DAILY DOSE: 5 MILLIGRAM(S)
     Route: 048
     Dates: start: 20030530, end: 20030612
  14. BENZALIN [Concomitant]
     Dosage: DAILY DOSE: 10 MILLIGRAM(S)
     Route: 048
     Dates: start: 20030613, end: 20030619
  15. VEGETAMIN-B [Concomitant]
     Indication: INSOMNIA
     Dosage: DAILY DOSE: 1 DOSAGE FORM
     Route: 048
     Dates: start: 20030603, end: 20030607
  16. VEGETAMIN-B [Concomitant]
     Dosage: DAILY DOSE: 2 DOSAGE FORM
     Route: 048
     Dates: start: 20030608, end: 20030610
  17. VITAMIN A [Concomitant]
     Indication: INSOMNIA
     Dosage: DAILY DOSE: 1 DOSAGE FORM
     Route: 048
     Dates: start: 20030611, end: 20030614
  18. KOLANTYL [Concomitant]
     Indication: GASTROINTESTINAL DISORDER
     Dosage: DAILY DOSE: 9 GRAM(S)
     Route: 048
     Dates: start: 20030610, end: 20030619
  19. ELIETEN [Concomitant]
     Indication: GASTROINTESTINAL DISORDER
     Dosage: DAILY DOSE: 4.5 MILLIGRAM(S)
     Route: 048
     Dates: start: 20030610, end: 20030619
  20. ALOSENN [Concomitant]
     Indication: CONSTIPATION
     Dosage: DAILY DOSE: 1 GRAM(S)
     Route: 048
     Dates: start: 20030610, end: 20030619
  21. HEAVY MAGNESIUM OXIDE [Concomitant]
     Indication: CONSTIPATION
     Dosage: DAILY DOSE: 1 GRAM(S)
     Route: 048
     Dates: start: 20030618, end: 20030619
  22. PURSENNID [Concomitant]
     Indication: CONSTIPATION
     Dosage: DAILY DOSE: 3 DOSAGE FORM
     Route: 048
     Dates: start: 20030613, end: 20030619
  23. KEFRAL [Concomitant]
     Indication: UPPER RESPIRATORY TRACT INFLAMMATION
     Dosage: DAILY DOSE: 750 MILLIGRAM(S)
     Route: 048
     Dates: start: 20030607, end: 20030610
  24. INDOMETHACIN [Concomitant]
     Indication: PYREXIA
     Dosage: DAILY DOSE: 25 MILLIGRAM(S)
     Route: 054
     Dates: start: 20030607, end: 20030607
  25. AKINETON [Concomitant]
     Indication: PROPHYLAXIS
     Dosage: DAILY DOSE: 1 MILLILITRE(S)
     Route: 030
     Dates: start: 20030530, end: 20030530
  26. AKINETON [Concomitant]
     Dosage: DAILY DOSE: 1 MILLILITRE(S)
     Route: 030
     Dates: start: 20030620, end: 20030620
  27. DORMICUM [Concomitant]
     Indication: SEDATION
     Dosage: DAILY DOSE: 10 MILLIGRAM(S)
     Route: 030
     Dates: start: 20030530, end: 20030530
  28. UROKINASE [Concomitant]
     Indication: ILL-DEFINED DISORDER
     Dosage: DAILY DOSE: 500 MILLILITRE(S)
     Route: 065
     Dates: start: 20030530, end: 20030613
  29. SOLDEM 3 A [Concomitant]
     Indication: ELECTROLYTE IMBALANCE
     Dosage: DAILY DOSE: 500 MILLILITRE(S)
     Route: 065
     Dates: start: 20030530, end: 20030613

REACTIONS (1)
  - NEUROLEPTIC MALIGNANT SYNDROME [None]
